FAERS Safety Report 14824187 (Version 1)
Quarter: 2018Q2

REPORT INFORMATION
  Report Type: Spontaneous
  Country: HR (occurrence: HR)
  Receive Date: 20180428
  Receipt Date: 20180428
  Transmission Date: 20180711
  Serious: Yes (Hospitalization, Other)
  Sender: FDA-Public Use
  Company Number: HR-AMGEN-HRVSP2018054780

PATIENT
  Age: 69 Year
  Sex: Female
  Weight: 76 kg

DRUGS (14)
  1. MIMPARA [Suspect]
     Active Substance: CINACALCET HYDROCHLORIDE
     Dosage: 60 MG, QD
     Route: 065
  2. ATORVASTATIN [Concomitant]
     Active Substance: ATORVASTATIN
     Dosage: 10 MG, QD
  3. SODIUM GLUCONATE. [Concomitant]
     Active Substance: SODIUM GLUCONATE
     Dosage: 1X QWK
  4. EPOETIN [Concomitant]
     Active Substance: ERYTHROPOIETIN
     Dosage: UNK
  5. PARICALCITOL. [Concomitant]
     Active Substance: PARICALCITOL
     Indication: HYPERPARATHYROIDISM SECONDARY
     Dosage: UNK
     Dates: start: 201102
  6. SEVELAMER [Concomitant]
     Active Substance: SEVELAMER
     Indication: HYPERPARATHYROIDISM SECONDARY
     Dosage: 2400 MG, TID
     Dates: start: 20080210
  7. WARFARIN [Concomitant]
     Active Substance: WARFARIN
  8. NEPRO HP [Concomitant]
     Dosage: 2X1 PACK
  9. PANTOPRAZOLE [Concomitant]
     Active Substance: PANTOPRAZOLE
     Dosage: 40 MG, UNK
  10. MIMPARA [Suspect]
     Active Substance: CINACALCET HYDROCHLORIDE
     Indication: HYPERPARATHYROIDISM SECONDARY
     Dosage: 30 MG, UNK
     Route: 065
     Dates: start: 20130721
  11. BISOPROLOL [Concomitant]
     Active Substance: BISOPROLOL
     Dosage: 2.5 MG, UNK
  12. AMLODIPINE W/RAMIPRIL [Concomitant]
     Dosage: 5/5 MG
  13. VITAMIN B12 [Concomitant]
     Active Substance: CYANOCOBALAMIN
     Dosage: 500 MCG, 3XWEEKLY- (1000 MCG MONTHLY)
     Route: 030
  14. VITAMIN B9 [Concomitant]
     Dosage: 5 MG, UNK

REACTIONS (5)
  - Small intestine carcinoma [Unknown]
  - Aneurysm ruptured [Unknown]
  - Otitis media [Unknown]
  - Bone density decreased [Unknown]
  - Osteoarthritis [Unknown]

NARRATIVE: CASE EVENT DATE: 20130930
